FAERS Safety Report 4633897-0 (Version None)
Quarter: 2005Q2

REPORT INFORMATION
  Report Type: 
  Country: None (occurrence: None)
  Receive Date: 20050412
  Receipt Date: 20050331
  Transmission Date: 20051028
  Serious: Yes (Other)
  Sender: FDA-Public Use
  Company Number: C-05-0025

PATIENT
  Age: 87 Year
  Sex: Female
  Weight: 51.7101 kg

DRUGS (4)
  1. PROMETHAZINE SYRUP, PLAIN, MGP PRODUCT CODE 7608 [Suspect]
     Indication: ALLERGIC COUGH
     Dosage: 1 TSP TWICE DAILY ORALLY
     Route: 048
     Dates: start: 20050317, end: 20050321
  2. METOPROLOL TARTRATE [Concomitant]
  3. COUMADIN [Concomitant]
  4. ACTONEL [Concomitant]

REACTIONS (6)
  - ASTHENIA [None]
  - ATRIAL FIBRILLATION [None]
  - DIZZINESS [None]
  - DYSPNOEA [None]
  - GAIT DISTURBANCE [None]
  - PAIN IN EXTREMITY [None]
